FAERS Safety Report 5020069-3 (Version None)
Quarter: 2006Q2

REPORT INFORMATION
  Report Type: 
  Country: None (occurrence: None)
  Receive Date: 20060607
  Receipt Date: 20060529
  Transmission Date: 20061013
  Serious: Yes (Hospitalization)
  Sender: FDA-Public Use
  Company Number: FR-GLAXOSMITHKLINE-B0426020A

PATIENT
  Age: 51 Year
  Sex: Male

DRUGS (4)
  1. COMBIVIR [Suspect]
     Indication: HIV INFECTION
     Route: 048
     Dates: end: 20060331
  2. BACTRIM [Suspect]
     Dosage: 1UNIT PER DAY
     Route: 048
     Dates: end: 20060329
  3. REBETOL [Concomitant]
     Route: 048
     Dates: start: 20060228, end: 20060329
  4. PEGASYS [Concomitant]
     Dosage: 1UNIT PER DAY
     Route: 058
     Dates: start: 20060228, end: 20060329

REACTIONS (4)
  - HAEMOLYTIC ANAEMIA [None]
  - HYPERBILIRUBINAEMIA [None]
  - LEUKOPENIA [None]
  - THROMBOCYTOPENIA [None]
